FAERS Safety Report 25660504 (Version 1)
Quarter: 2025Q3

REPORT INFORMATION
  Report Type: Spontaneous
  Country: US (occurrence: None)
  Receive Date: 20250807
  Receipt Date: 20250807
  Transmission Date: 20251021
  Serious: Yes (Hospitalization)
  Sender: FDA-CTU
  Company Number: None

PATIENT
  Sex: Female
  Weight: 176.9 kg

DRUGS (21)
  1. NEXPLANON [Suspect]
     Active Substance: ETONOGESTREL
  2. Amlodipine 5mg - 1 in morning [Concomitant]
  3. Atenolol 50mg - 1 in morning [Concomitant]
  4. Escitalopram 15mg ? 1? a 10mg tab in morning [Concomitant]
  5. Dextroamphetamine 15 mg ? 1 in morning, 1 in afternoon [Concomitant]
  6. Metformin 500mg ? 2 in morning, 2 in evening [Concomitant]
  7. Mirtazipine 30mg ? 1 tab before bed [Concomitant]
  8. Montelukast Sodium 10mg - 1 in morning [Concomitant]
  9. Naltrexone 50mg ? 1 in morning [Concomitant]
  10. Nikki 3mg/0.02mg ? 1 in evening [Concomitant]
  11. Omeprazole 20mg - 1 in morning [Concomitant]
  12. Oxybutnin 15mg ? 1 at night [Concomitant]
  13. Vraylar 3mg ? 1 at night Pain Management ? [Concomitant]
  14. Aimovig 70mg - once a month (for migraines) [Concomitant]
  15. Pregabalin 225mg ? 2x/day (for nerve pain) As Needed ? [Concomitant]
  16. Albuterol Inhaler (Rescue Inhaler) [Concomitant]
  17. FLONASE [Concomitant]
     Active Substance: FLUTICASONE PROPIONATE
  18. CLONAZEPAM [Concomitant]
     Active Substance: CLONAZEPAM
  19. DEVICE [Concomitant]
     Active Substance: DEVICE
  20. Bariatric Calcium Chewable once a day, [Concomitant]
  21. Fexofenadine Hydrochloride (Allegra) 24 hour at night [Concomitant]

REACTIONS (2)
  - Weight increased [None]
  - Intentional self-injury [None]
